FAERS Safety Report 4711138-3 (Version None)
Quarter: 2005Q3

REPORT INFORMATION
  Report Type: 
  Country: None (occurrence: None)
  Receive Date: 20050708
  Receipt Date: 20050706
  Transmission Date: 20060218
  Serious: Yes (Hospitalization)
  Sender: FDA-Public Use
  Company Number: THQ2005A00559

PATIENT
  Sex: Male

DRUGS (3)
  1. LUCRIN DEPOT PDS (LEUPROLIDE ACETATE) [Suspect]
     Indication: PROSTATE CANCER
     Dosage: (1 IN 3 M)                INJECTION
  2. LUCRIN DEPOT PDS    (LEUPROLIDE ACETATE) [Suspect]
     Indication: PROSTATE CANCER
     Dosage: (1 IN 1 M)   INJRCTION
  3. ANTIDIABETICS  (ANTI-DIABETICS) [Concomitant]

REACTIONS (4)
  - BLOOD GLUCOSE INCREASED [None]
  - DEPRESSED LEVEL OF CONSCIOUSNESS [None]
  - DIABETIC COMPLICATION [None]
  - DRUG ADMINISTRATION ERROR [None]
